FAERS Safety Report 6363243-6 (Version None)
Quarter: 2009Q3

REPORT INFORMATION
  Report Type: 
  Country: None (occurrence: None)
  Receive Date: 20090919
  Receipt Date: 20090623
  Transmission Date: 20100115
  Serious: No
  Sender: FDA-Public Use
  Company Number: US-ABBOTT-09P-163-0581682-00

PATIENT
  Sex: Male
  Weight: 90.8 kg

DRUGS (3)
  1. HUMIRA [Suspect]
     Indication: PSORIASIS
     Route: 058
     Dates: start: 20090101
  2. CHANTIX [Concomitant]
     Indication: SMOKING CESSATION THERAPY
  3. ADVIL [Concomitant]
     Indication: NECK PAIN

REACTIONS (1)
  - DRUG DOSE OMISSION [None]
